FAERS Safety Report 10065511 (Version 1)
Quarter: 2014Q2

REPORT INFORMATION
  Report Type: Spontaneous
  Country: US (occurrence: US)
  Receive Date: 20140408
  Receipt Date: 20140408
  Transmission Date: 20141212
  Serious: Yes (Other)
  Sender: FDA-Public Use
  Company Number: US-B.I. PHARMACEUTICALS,INC./RIDGEFIELD-2014-BI-14927GD

PATIENT
  Age: 71 Year
  Sex: Female

DRUGS (1)
  1. MIRAPEX [Suspect]
     Indication: PARKINSON^S DISEASE
     Dosage: ADVERSE EVENT OCCURRED SHORTLY AFTER DOSE INCREASE
     Route: 065

REACTIONS (4)
  - Disturbance in sexual arousal [Unknown]
  - Anxiety [Unknown]
  - Insomnia [Unknown]
  - Quality of life decreased [Unknown]
